FAERS Safety Report 7225919-8 (Version None)
Quarter: 2011Q1

REPORT INFORMATION
  Report Type: 
  Country: None (occurrence: None)
  Receive Date: 20110113
  Receipt Date: 20110111
  Transmission Date: 20110831
  Serious: Yes (Death, Other)
  Sender: FDA-Public Use
  Company Number: JP-PFIZER INC-2010175134

PATIENT
  Age: 69 Year
  Sex: Male
  Weight: 56.9 kg

DRUGS (7)
  1. ZYVOX [Suspect]
     Indication: STAPHYLOCOCCAL INFECTION
     Dosage: 600 MG, 2X/DAY
     Route: 041
     Dates: start: 20081210, end: 20081222
  2. FULCALIQ [Concomitant]
     Dosage: 1 DF, 1X/DAY
     Route: 042
     Dates: start: 20081206
  3. VANCOMYCIN [Concomitant]
     Indication: STAPHYLOCOCCAL INFECTION
     Dosage: 500 MG, 2X/DAY
     Route: 042
     Dates: start: 20081206, end: 20081209
  4. SOLITA T [Concomitant]
     Dosage: 3 DF, 1X/DAY
     Route: 042
     Dates: start: 20081206
  5. LASIX [Concomitant]
     Dosage: 40 MG, 1X/DAY
     Route: 042
     Dates: start: 20081206
  6. PERDIPINE [Concomitant]
     Dosage: 100 MG, 1X/DAY
     Route: 042
     Dates: start: 20081206
  7. HANP [Concomitant]
     Dosage: 4000 UG, 1X/DAY
     Route: 042
     Dates: start: 20081209

REACTIONS (3)
  - PLATELET COUNT DECREASED [None]
  - ANAEMIA [None]
  - DEATH [None]
